FAERS Safety Report 4375380-6 (Version None)
Quarter: 2004Q2

REPORT INFORMATION
  Report Type: 
  Country: None (occurrence: None)
  Receive Date: 20040607
  Receipt Date: 20040526
  Transmission Date: 20050107
  Serious: No
  Sender: FDA-Public Use
  Company Number: 04H-163-0262241-00

PATIENT

DRUGS (10)
  1. DOBUTAMINE HCL [Suspect]
  2. FUROSEMIDE [Concomitant]
  3. METOLAZONE [Concomitant]
  4. CAPTOPRIL [Concomitant]
  5. DIGOXIN [Concomitant]
  6. EPINEPHRINE [Concomitant]
  7. SODIUM NITROPRUSSIDE [Concomitant]
  8. VANCOMYCIN [Concomitant]
  9. CEFTAZIDIME [Concomitant]
  10. ALPROSTADIL [Concomitant]

REACTIONS (5)
  - CARDIAC FAILURE [None]
  - CARDIAC FUNCTION TEST ABNORMAL [None]
  - EOSINOPHILIA [None]
  - EOSINOPHILIC MYOCARDITIS [None]
  - PRURITUS [None]
